FAERS Safety Report 11719980 (Version 1)
Quarter: 2015Q4

REPORT INFORMATION
  Report Type: Spontaneous
  Country: US (occurrence: US)
  Receive Date: 20151110
  Receipt Date: 20151110
  Transmission Date: 20160304
  Serious: No
  Sender: FDA-Public Use
  Company Number: US-009507513-1511USA005562

PATIENT
  Age: 29 Year
  Sex: Female
  Weight: 131.52 kg

DRUGS (1)
  1. NEXPLANON [Suspect]
     Active Substance: ETONOGESTREL
     Indication: CONTRACEPTION
     Dosage: 3 YEARS
     Route: 059
     Dates: start: 20131216

REACTIONS (4)
  - Breast tenderness [Unknown]
  - Muscle spasms [Unknown]
  - Abdominal pain lower [Unknown]
  - Pain [Unknown]
